FAERS Safety Report 9889604 (Version 3)
Quarter: 2014Q2

REPORT INFORMATION
  Report Type: Spontaneous
  Country: US (occurrence: US)
  Receive Date: 20140211
  Receipt Date: 20140516
  Transmission Date: 20141212
  Serious: No
  Sender: FDA-Public Use
  Company Number: US-GILEAD-2014-0094318

PATIENT
  Sex: Female

DRUGS (2)
  1. LETAIRIS [Suspect]
     Indication: PRODUCT USED FOR UNKNOWN INDICATION
     Dosage: 10 MG, QD
     Route: 048
     Dates: start: 20140107
  2. REMODULIN [Concomitant]

REACTIONS (4)
  - Pain in jaw [Unknown]
  - Arthralgia [Unknown]
  - Musculoskeletal pain [Unknown]
  - Palpitations [Unknown]
